FAERS Safety Report 21270184 (Version 5)
Quarter: 2022Q4

REPORT INFORMATION
  Report Type: Spontaneous
  Country: US (occurrence: US)
  Receive Date: 20220830
  Receipt Date: 20221014
  Transmission Date: 20230113
  Serious: No
  Sender: FDA-Public Use
  Company Number: US-PFIZER INC-202201099563

PATIENT
  Age: 63 Year
  Sex: Female
  Weight: 61.23 kg

DRUGS (1)
  1. PAXLOVID [Suspect]
     Active Substance: NIRMATRELVIR\RITONAVIR
     Indication: COVID-19 treatment
     Dosage: [PF-07321332 300 MG]/[RITONAVIR 100 MG]; 2X/DAY
     Dates: start: 20220810, end: 20220814

REACTIONS (6)
  - Therapeutic product effect incomplete [Unknown]
  - Product taste abnormal [Unknown]
  - Taste disorder [Unknown]
  - Product odour abnormal [Unknown]
  - Parosmia [Unknown]
  - Eructation [Unknown]

NARRATIVE: CASE EVENT DATE: 20220801
